FAERS Safety Report 4819514-5 (Version None)
Quarter: 2005Q4

REPORT INFORMATION
  Report Type: 
  Country: None (occurrence: None)
  Receive Date: 20051031
  Receipt Date: 20050621
  Transmission Date: 20060501
  Serious: No
  Sender: FDA-Public Use
  Company Number: 2005PV000098

PATIENT
  Age: 57 Year
  Sex: Female
  Weight: 61.2356 kg

DRUGS (16)
  1. SYMLIN [Suspect]
     Indication: DIABETES MELLITUS INSULIN-DEPENDENT
     Dosage: 15 MCG; QID; SC; SEE IMAGE
     Route: 058
     Dates: start: 20050518, end: 20050520
  2. SYMLIN [Suspect]
     Indication: DIABETES MELLITUS INSULIN-DEPENDENT
     Dosage: 15 MCG; QID; SC; SEE IMAGE
     Route: 058
     Dates: start: 20050521, end: 20050601
  3. SYMLIN [Suspect]
     Indication: DIABETES MELLITUS INSULIN-DEPENDENT
     Dosage: 15 MCG; QID; SC; SEE IMAGE
     Route: 058
     Dates: start: 20050601, end: 20050601
  4. SYMLIN [Suspect]
     Indication: DIABETES MELLITUS INSULIN-DEPENDENT
     Dosage: 15 MCG; QID; SC; SEE IMAGE
     Route: 058
     Dates: start: 20050601, end: 20050601
  5. SYMLIN [Suspect]
     Indication: DIABETES MELLITUS INSULIN-DEPENDENT
     Dosage: 15 MCG; QID; SC; SEE IMAGE
     Route: 058
     Dates: start: 20050701, end: 20050701
  6. SYMLIN [Suspect]
     Indication: DIABETES MELLITUS INSULIN-DEPENDENT
     Dosage: 15 MCG; QID; SC; SEE IMAGE
     Route: 058
     Dates: start: 20050601, end: 20050716
  7. SYMLIN [Suspect]
     Indication: DIABETES MELLITUS INSULIN-DEPENDENT
     Dosage: 15 MCG; QID; SC; SEE IMAGE
     Route: 058
     Dates: start: 20050701
  8. SYMLIN [Suspect]
     Indication: DIABETES MELLITUS INSULIN-DEPENDENT
     Dosage: 15 MCG; QID; SC; SEE IMAGE
     Route: 058
     Dates: start: 20050717
  9. NOVOLOG [Concomitant]
  10. HUMALOG [Concomitant]
  11. LANTUS [Concomitant]
  12. ZETIA [Concomitant]
  13. PREMARIN [Concomitant]
  14. VITAMIN D [Concomitant]
  15. HYDROCHLOROTHIAZIDE [Concomitant]
  16. LUNESTRA [Concomitant]

REACTIONS (12)
  - ABDOMINAL DISTENSION [None]
  - ANOREXIA [None]
  - BLOOD GLUCOSE INCREASED [None]
  - CHILLS [None]
  - FATIGUE [None]
  - INFLUENZA LIKE ILLNESS [None]
  - INJECTION SITE BRUISING [None]
  - INJECTION SITE PAIN [None]
  - INSOMNIA [None]
  - MALAISE [None]
  - NAUSEA [None]
  - WEIGHT DECREASED [None]
